FAERS Safety Report 9512097 (Version 1)
Quarter: 2013Q1

REPORT INFORMATION
  Report Type: Spontaneous
  Country: US (occurrence: None)
  Receive Date: 20130305
  Receipt Date: 20130305
  Transmission Date: 20140127
  Serious: Yes (Hospitalization, Other)
  Sender: FDA-Public Use
  Company Number: 163-21880-12102514

PATIENT
  Age: 74 Year
  Sex: Female

DRUGS (10)
  1. REVLIMID [Suspect]
     Indication: PLASMA CELL MYELOMA
     Dosage: 5 MG, 21 IN 21 D, PO
     Route: 048
     Dates: start: 20120705
  2. GABAPENTIN (GABAPENTIN) (UNKNOWN) (GABAPENTIN) [Concomitant]
  3. MEGESTROL ACETATE (MEGESTROL ACETATE) (UNKNOWN) [Concomitant]
  4. ULTRAM (TRAMADOL HYDROCHLORIDE) (UNKNOWN) [Concomitant]
  5. ALPRAZOLAM (ALPRAZOLAM) (UNKNOWN) (ALPRAZOLAM) [Concomitant]
  6. ASPIRIN CHILDREN (ACETYLSALICYLIC ACID) (UNKNOWN) [Concomitant]
  7. DEXAMETHASONE (DEXAMETHASONE) (UNKNOWN)? [Concomitant]
  8. GERITOL COMPLETE (GERITOL COMPLETE) (UNKNOWN) [Concomitant]
  9. LACTULOSE (LACTULOSE) (UNKNOWN) [Concomitant]
  10. LEXAPRO (ESCITALOPRAM OXALATE) (UNKNOWN)? [Concomitant]

REACTIONS (2)
  - Pneumonia [None]
  - Full blood count decreased [None]
